FAERS Safety Report 7435573-8 (Version None)
Quarter: 2011Q2

REPORT INFORMATION
  Report Type: 
  Country: None (occurrence: None)
  Receive Date: 20110425
  Receipt Date: 20110418
  Transmission Date: 20111010
  Serious: Yes (Life-Threatening)
  Sender: FDA-Public Use
  Company Number: GB-BAYER-2011-033616

PATIENT
  Age: 70 Year
  Sex: Male
  Weight: 70.7 kg

DRUGS (14)
  1. SORAFENIB (RAF KINASE INHIBITOR) [Suspect]
     Dosage: 400 MG, BID (CYCLE 1, DAY 22)
     Route: 048
     Dates: start: 20110125, end: 20110214
  2. BLINDED SORAFENIB (RAF KINASE INHIBITOR) [Suspect]
     Dosage: 150 MG, QD (CYCLE 1, DAY 22)
     Dates: start: 20110125, end: 20110214
  3. SIMVASTATIN [Concomitant]
     Indication: HYPERCHOLESTEROLAEMIA
     Dosage: 80 MG, UNK
  4. RAMIPRIL [Concomitant]
     Indication: HYPERTENSION
     Dosage: 10 MG, UNK
  5. NAFTIDROFURYL [Concomitant]
     Indication: CEREBROVASCULAR ACCIDENT PROPHYLAXIS
     Dosage: 300 MG, UNK
  6. NIOPAM [Concomitant]
     Indication: DIAGNOSTIC PROCEDURE
     Dosage: 100 MG, UNK
     Dates: start: 20101229, end: 20110209
  7. SORAFENIB (RAF KINASE INHIBITOR) [Suspect]
     Indication: HEPATIC NEOPLASM MALIGNANT
     Dosage: 400 MG, BID (CYCEL 1, DAY 1)
     Route: 048
     Dates: start: 20110105, end: 20110124
  8. BLINDED SORAFENIB (RAF KINASE INHIBITOR) [Suspect]
     Indication: HEPATIC NEOPLASM MALIGNANT
     Dosage: 150 MG, QD (CYCLE 1, DAY 1)
     Dates: start: 20110105, end: 20110124
  9. ASPIRIN [Concomitant]
     Indication: THROMBOSIS PROPHYLAXIS
     Dosage: 75 MG, UNK
  10. HUMALOG [Concomitant]
     Indication: DIABETES MELLITUS
     Dosage: 2 DOSES
  11. TADALAFIL [Concomitant]
     Indication: HYPERTENSION
     Dosage: 20 MG, UNK
  12. METFORMIN [Concomitant]
     Indication: DIABETES MELLITUS
     Dosage: 2 TABS
  13. LACTULOSE [Concomitant]
     Indication: CONSTIPATION
     Dosage: 20 ML, UNK
     Dates: start: 20110202, end: 20110210
  14. GASTROGRAFIN [Concomitant]
     Indication: DIAGNOSTIC PROCEDURE
     Dosage: 20 ML, UNK
     Dates: start: 20101229, end: 20110209

REACTIONS (3)
  - ASPARTATE AMINOTRANSFERASE INCREASED [None]
  - BILIRUBIN CONJUGATED INCREASED [None]
  - ALANINE AMINOTRANSFERASE INCREASED [None]
